FAERS Safety Report 7685772-5 (Version None)
Quarter: 2011Q3

REPORT INFORMATION
  Report Type: 
  Country: None (occurrence: None)
  Receive Date: 20110815
  Receipt Date: 20110815
  Transmission Date: 20111222
  Serious: Yes (Other)
  Sender: FDA-Public Use
  Company Number: None

PATIENT
  Age: 5 Month
  Sex: Male
  Weight: 4.6 kg

DRUGS (1)
  1. INFUVITE PEDIATRIC [Suspect]
     Indication: NUTRITIONAL SUPPORT
     Dosage: INFUSED FROM 24-HR TPN BAG
     Route: 041
     Dates: start: 20110630, end: 20110705

REACTIONS (2)
  - ERYTHEMA [None]
  - RASH MACULAR [None]
